FAERS Safety Report 25560417 (Version 2)
Quarter: 2025Q3

REPORT INFORMATION
  Report Type: Spontaneous
  Country: JP (occurrence: JP)
  Receive Date: 20250715
  Receipt Date: 20250901
  Transmission Date: 20251021
  Serious: Yes (Death, Other)
  Sender: MERCK SHARP & DOHME LLC
  Company Number: JP-MSD-M2024-09686

PATIENT
  Age: 7 Decade
  Sex: Female
  Weight: 39.1 kg

DRUGS (4)
  1. KEYTRUDA [Suspect]
     Active Substance: PEMBROLIZUMAB
     Indication: Uterine cancer
     Route: 041
     Dates: start: 20240228, end: 20240228
  2. LENVATINIB MESYLATE [Suspect]
     Active Substance: LENVATINIB MESYLATE
     Indication: Uterine cancer
     Route: 048
     Dates: start: 20240228, end: 20240306
  3. LOXOPROFEN [Concomitant]
     Active Substance: LOXOPROFEN
     Dates: start: 20240228
  4. NIFEDIPINE [Concomitant]
     Active Substance: NIFEDIPINE
     Dates: start: 20240303

REACTIONS (5)
  - Malignant neoplasm progression [Fatal]
  - Myelosuppression [Recovered/Resolved]
  - Tumour lysis syndrome [Fatal]
  - Multiple organ dysfunction syndrome [Unknown]
  - Renal impairment [Unknown]

NARRATIVE: CASE EVENT DATE: 20240101
